FAERS Safety Report 5380830-2 (Version None)
Quarter: 2007Q3

REPORT INFORMATION
  Report Type: 
  Country: None (occurrence: None)
  Receive Date: 20070706
  Receipt Date: 20070628
  Transmission Date: 20080115
  Serious: Yes (Hospitalization)
  Sender: FDA-Public Use
  Company Number: FR-ABBOTT-07P-056-0373022-00

PATIENT
  Age: 10 Year
  Sex: Female

DRUGS (7)
  1. DEPAKENE [Suspect]
     Indication: ANOXIA
     Route: 048
     Dates: start: 20000701, end: 20021201
  2. DEPAKENE [Suspect]
     Indication: ENCEPHALOPATHY
     Route: 048
     Dates: start: 20021201, end: 20051201
  3. DEPAKENE [Suspect]
     Indication: CONVULSION
     Route: 048
     Dates: start: 20051201
  4. CLONAZEPAM [Concomitant]
     Indication: ENCEPHALOPATHY
     Route: 048
  5. CLONAZEPAM [Concomitant]
     Indication: CONVULSION
  6. CLOBAZAM [Concomitant]
     Indication: ENCEPHALOPATHY
     Route: 048
  7. STIRIPENTOL [Concomitant]
     Indication: DRUG USE FOR UNKNOWN INDICATION
     Route: 048

REACTIONS (6)
  - BLOOD PARATHYROID HORMONE DECREASED [None]
  - BLOOD PHOSPHORUS DECREASED [None]
  - DRUG LEVEL DECREASED [None]
  - HYPONATRAEMIA [None]
  - LUNG DISORDER [None]
  - THROMBOCYTOPENIA [None]
